FAERS Safety Report 10415990 (Version 2)
Quarter: 2014Q3

REPORT INFORMATION
  Report Type: Spontaneous
  Country: US (occurrence: US)
  Receive Date: 20140828
  Receipt Date: 20140828
  Transmission Date: 20150326
  Serious: No
  Sender: FDA-Public Use
  Company Number: US-ELI_LILLY_AND_COMPANY-US201408005915

PATIENT
  Sex: Male

DRUGS (2)
  1. HUMATROPE [Suspect]
     Active Substance: SOMATROPIN
     Indication: GROWTH HORMONE DEFICIENCY
     Dosage: 1.6 MG, QD
     Route: 065
     Dates: start: 20140811
  2. HUMATROPE [Suspect]
     Active Substance: SOMATROPIN
     Dosage: 1.6 MG, UNK
     Route: 065

REACTIONS (3)
  - Injection site pain [Unknown]
  - Injection site pain [Not Recovered/Not Resolved]
  - Incorrect dose administered by device [Unknown]
